FAERS Safety Report 23548850 (Version 2)
Quarter: 2025Q2

REPORT INFORMATION
  Report Type: Spontaneous
  Country: US (occurrence: US)
  Receive Date: 20240221
  Receipt Date: 20250415
  Transmission Date: 20250716
  Serious: Yes (Hospitalization)
  Sender: RECORDATI
  Company Number: US-ORPHANEU-2020002882

PATIENT
  Sex: Male

DRUGS (2)
  1. CARBAGLU [Suspect]
     Active Substance: CARGLUMIC ACID
     Indication: Urea cycle disorder
     Dosage: 1200 MILLIGRAM, BID (6 TABLET TWICE A DAY)
     Dates: start: 20130427
  2. CARBAGLU [Suspect]
     Active Substance: CARGLUMIC ACID
     Dosage: 6 TABLETS TWICE A DAY

REACTIONS (3)
  - Ammonia increased [Unknown]
  - Off label use [Recovered/Resolved]
  - Product physical issue [Recovered/Resolved]

NARRATIVE: CASE EVENT DATE: 20200101
